FAERS Safety Report 8402225-7 (Version None)
Quarter: 2012Q2

REPORT INFORMATION
  Report Type: 
  Country: None (occurrence: None)
  Receive Date: 20120601
  Receipt Date: 20120521
  Transmission Date: 20120825
  Serious: Yes (Other)
  Sender: FDA-Public Use
  Company Number: US-SHIRE-ALL1-2012-02552

PATIENT
  Age: 61 Year
  Sex: Male

DRUGS (1)
  1. VPRIV [Suspect]
     Indication: GAUCHER'S DISEASE
     Dosage: 6400 IU, 1X/2WKS
     Route: 041
     Dates: start: 20110727

REACTIONS (6)
  - DEMENTIA [None]
  - TREMOR [None]
  - DECUBITUS ULCER [None]
  - INFUSION RELATED REACTION [None]
  - NERVOUS SYSTEM DISORDER [None]
  - DEPRESSION [None]
